FAERS Safety Report 17941632 (Version 1)
Quarter: 2020Q2

REPORT INFORMATION
  Report Type: Spontaneous
  Country: US (occurrence: US)
  Receive Date: 20200624
  Receipt Date: 20200624
  Transmission Date: 20200714
  Serious: No
  Sender: FDA-Public Use
  Company Number: None

PATIENT
  Age: 59 Year
  Sex: Male
  Weight: 101.15 kg

DRUGS (8)
  1. ESOMEPRA MAG CAP [Concomitant]
     Active Substance: ESOMEPRAZOLE MAGNESIUM
  2. CENTRUM SILVER (MEN 50+) [Concomitant]
  3. ASPIRIN. [Concomitant]
     Active Substance: ASPIRIN
  4. LAMICTAL [Concomitant]
     Active Substance: LAMOTRIGINE
  5. LISINOPRIL. [Concomitant]
     Active Substance: LISINOPRIL
  6. TUMS [Concomitant]
     Active Substance: CALCIUM CARBONATE
  7. TRELEGY ELLIPTA [Concomitant]
     Active Substance: FLUTICASONE FUROATE\UMECLIDINIUM BROMIDE\VILANTEROL TRIFENATATE
  8. LAMOTRIGINE. [Suspect]
     Active Substance: LAMOTRIGINE
     Indication: EPILEPSY
     Dosage: ?          QUANTITY:1 IN MORNING 1 IN ;?

REACTIONS (4)
  - Heart rate irregular [None]
  - Headache [None]
  - Chest pain [None]
  - Product substitution issue [None]
